FAERS Safety Report 19251905 (Version 1)
Quarter: 2021Q2

REPORT INFORMATION
  Report Type: Spontaneous
  Country: US (occurrence: US)
  Receive Date: 20210513
  Receipt Date: 20210513
  Transmission Date: 20210717
  Serious: Yes (Other)
  Sender: FDA-Public Use
  Company Number: US-SUN PHARMACEUTICAL INDUSTRIES LTD-2021R1-296030

PATIENT
  Age: 44 Year
  Sex: Female

DRUGS (4)
  1. DEXTROSE. [Suspect]
     Active Substance: DEXTROSE
     Indication: HYPERKALAEMIA
     Dosage: 2 AMPULES (100 MEQ) , UNK
     Route: 042
  2. INSULIN [Suspect]
     Active Substance: INSULIN NOS
     Indication: HYPERKALAEMIA
     Dosage: 6 U , UNK
     Route: 065
  3. SALBUTAMOL [Suspect]
     Active Substance: ALBUTEROL
     Indication: HYPERKALAEMIA
     Dosage: UNK
     Route: 065
  4. CALCIUM GLUCONATE. [Suspect]
     Active Substance: CALCIUM GLUCONATE
     Indication: HYPERKALAEMIA
     Dosage: 2 GRAM, UNK
     Route: 042

REACTIONS (1)
  - Lactic acidosis [Unknown]
